FAERS Safety Report 16862542 (Version 1)
Quarter: 2019Q3

REPORT INFORMATION
  Report Type: Spontaneous
  Country: GB (occurrence: GB)
  Receive Date: 20190927
  Receipt Date: 20190927
  Transmission Date: 20191005
  Serious: Yes (Life-Threatening, Hospitalization)
  Sender: FDA-Public Use
  Company Number: GB-ASTRAZENECA-2019SF36936

PATIENT
  Sex: Male

DRUGS (6)
  1. MONTELUKAST [Concomitant]
     Active Substance: MONTELUKAST SODIUM
  2. SYMBICORT [Suspect]
     Active Substance: BUDESONIDE\FORMOTEROL FUMARATE DIHYDRATE
     Dosage: (400/12 UG), UNKNOWN UNKNOWN
     Route: 055
  3. PREDNISOLONE. [Concomitant]
     Active Substance: PREDNISOLONE
  4. THEOPHYLLINE [Concomitant]
     Active Substance: THEOPHYLLINE ANHYDROUS
  5. PULMICORT TURBUHALER [Suspect]
     Active Substance: BUDESONIDE
     Route: 055
  6. MEPOLIZUMAB [Concomitant]
     Active Substance: MEPOLIZUMAB

REACTIONS (5)
  - Overweight [Not Recovered/Not Resolved]
  - Somnolence [Unknown]
  - Polyp [Recovered/Resolved]
  - Asthma [Recovered/Resolved]
  - Adrenal insufficiency [Recovered/Resolved]

NARRATIVE: CASE EVENT DATE: 201707
